FAERS Safety Report 8935230 (Version 2)
Quarter: 2013Q1

REPORT INFORMATION
  Report Type: Spontaneous
  Country: US (occurrence: US)
  Receive Date: 20121129
  Receipt Date: 20130221
  Transmission Date: 20140127
  Serious: Yes (Hospitalization)
  Sender: FDA-Public Use
  Company Number: US-INCYTE CORPORATION-2012IN002404

PATIENT
  Age: 77 Year
  Sex: Male
  Weight: 68.48 kg

DRUGS (13)
  1. JAKAFI [Suspect]
     Indication: MYELOFIBROSIS
     Dosage: 5 MG, QD ALTERNATING WITH 5 MG, BID
     Route: 048
     Dates: start: 20120820, end: 20121120
  2. LISINOPRIL [Concomitant]
  3. METOPROLOL [Concomitant]
  4. CEFUROXIME [Concomitant]
  5. PLAVIX [Concomitant]
  6. REMERON [Concomitant]
  7. SIMVASTATIN [Concomitant]
  8. ALFUZOSIN [Concomitant]
  9. AVODART [Concomitant]
  10. VITAMIN B12 [Concomitant]
  11. PRAVASTATIN [Concomitant]
  12. AZTREONAM [Concomitant]
  13. PROTONIX [Concomitant]

REACTIONS (8)
  - Urosepsis [Recovered/Resolved]
  - Urinary tract infection [Recovered/Resolved]
  - Pneumonia [Unknown]
  - Confusional state [Recovered/Resolved]
  - Hypotension [Unknown]
  - Pyrexia [Recovered/Resolved]
  - Platelet count decreased [Unknown]
  - Haemoglobin decreased [Unknown]
